FAERS Safety Report 9397514 (Version 1)
Quarter: 2013Q3

REPORT INFORMATION
  Report Type: Spontaneous
  Country: FR (occurrence: FR)
  Receive Date: 20130712
  Receipt Date: 20130712
  Transmission Date: 20140515
  Serious: Yes (Life-Threatening, Other)
  Sender: FDA-Public Use
  Company Number: FR-ASTRAZENECA-2013SE51065

PATIENT
  Age: 14563 Day
  Sex: Female

DRUGS (6)
  1. NAROPEINE [Suspect]
     Indication: EPIDURAL ANAESTHESIA
     Dosage: 15 ML OF NAROPEINE 7.5 MG/ML, ONCE/ SINGLE ADMINISTRATION
     Route: 008
     Dates: start: 20130312, end: 20130312
  2. DALACINE [Suspect]
     Indication: ANTIBIOTIC PROPHYLAXIS
     Route: 042
     Dates: start: 20130312, end: 20130312
  3. CLAFORAN [Suspect]
     Indication: ANTIBIOTIC PROPHYLAXIS
     Route: 042
     Dates: start: 20130312, end: 20130312
  4. SELOKEN [Concomitant]
     Indication: HYPERTENSION
  5. CERAZETTE [Concomitant]
  6. LEVOTHYROX [Concomitant]

REACTIONS (5)
  - Acute respiratory distress syndrome [Recovered/Resolved]
  - Type I hypersensitivity [Recovered/Resolved]
  - Hypotension [Recovered/Resolved]
  - Bradycardia [Recovered/Resolved]
  - Loss of consciousness [Unknown]
